FAERS Safety Report 8761696 (Version 1)
Quarter: 2012Q4

REPORT INFORMATION
  Report Type: Spontaneous
  Country: US (occurrence: None)
  Receive Date: 20120830
  Receipt Date: 20120830
  Transmission Date: 20130627
  Serious: No
  Sender: FDA-Public Use
  Company Number: None

PATIENT
  Age: 70 Year
  Sex: Female
  Weight: 62.6 kg

DRUGS (1)
  1. LUMIGAN [Suspect]
     Indication: OCULAR HYPERTENSION
     Dosage: each eye at night
     Dates: start: 20120215, end: 20120828

REACTIONS (4)
  - Photophobia [None]
  - Vision blurred [None]
  - Myopia [None]
  - Cataract [None]
